FAERS Safety Report 8017958-4 (Version None)
Quarter: 2011Q4

REPORT INFORMATION
  Report Type: 
  Country: None (occurrence: None)
  Receive Date: 20111228
  Receipt Date: 20111216
  Transmission Date: 20120403
  Serious: Yes (Hospitalization)
  Sender: FDA-Public Use
  Company Number: 2011P1012187

PATIENT
  Age: 19 Year
  Sex: Male

DRUGS (1)
  1. SOLODYN [Suspect]
     Indication: ACNE
     Dosage: 115 MG;QD;PO
     Route: 048
     Dates: start: 20111004, end: 20111001

REACTIONS (10)
  - OROPHARYNGEAL PAIN [None]
  - DRUG HYPERSENSITIVITY [None]
  - CARDIAC ENZYMES INCREASED [None]
  - VENTRICULAR EXTRASYSTOLES [None]
  - LEFT VENTRICULAR DYSFUNCTION [None]
  - PERICARDITIS [None]
  - VASOSPASM [None]
  - ELECTROCARDIOGRAM ST SEGMENT ELEVATION [None]
  - TROPONIN I INCREASED [None]
  - ELECTROCARDIOGRAM ST SEGMENT DEPRESSION [None]
